FAERS Safety Report 8313067-5 (Version None)
Quarter: 2012Q2

REPORT INFORMATION
  Report Type: 
  Country: None (occurrence: None)
  Receive Date: 20120426
  Receipt Date: 20120422
  Transmission Date: 20120825
  Serious: Yes (Other)
  Sender: FDA-Public Use
  Company Number: CH-PFIZER INC-2012074151

PATIENT
  Age: 55 Year
  Sex: Male

DRUGS (2)
  1. SUTENT [Suspect]
     Dosage: 50 MG PER DAY, CYCLIC (CYCLICALLY 4 WEEKS TREATMENT FOLLOWED BY 2 WEEK BREAK)
     Dates: end: 20110801
  2. SUTENT [Suspect]
     Indication: METASTATIC RENAL CELL CARCINOMA
     Dosage: 50 MG PER DAY, CYCLIC (CYCLICALLY 4 WEEKS TREATMENT FOLLOWED BY 2 WEEK BREAK)
     Dates: start: 20101201

REACTIONS (1)
  - ANAL ABSCESS [None]
